FAERS Safety Report 15831119 (Version 5)
Quarter: 2022Q1

REPORT INFORMATION
  Report Type: Other
  Country: CA (occurrence: CA)
  Receive Date: 20190116
  Receipt Date: 20220311
  Transmission Date: 20220423
  Serious: Yes (Other)
  Sender: FDA-Public Use
  Company Number: CA-ROCHE-2240247

PATIENT
  Age: 31 Year
  Sex: Female

DRUGS (3)
  1. OCREVUS [Suspect]
     Active Substance: OCRELIZUMAB
     Indication: Relapsing-remitting multiple sclerosis
     Dosage: 300 MG IN 250 ML SOLUTION AT DAY 0 AND 14, THEN 600 MG EVERY 6 MONTH
     Route: 042
     Dates: start: 20180629
  2. QVAR [Concomitant]
     Active Substance: BECLOMETHASONE DIPROPIONATE
  3. ALBUTEROL [Concomitant]
     Active Substance: ALBUTEROL

REACTIONS (19)
  - Suicidal ideation [Not Recovered/Not Resolved]
  - Palpitations [Unknown]
  - Depression [Not Recovered/Not Resolved]
  - Influenza like illness [Recovering/Resolving]
  - Muscle spasticity [Not Recovered/Not Resolved]
  - Asthenia [Unknown]
  - Toothache [Not Recovered/Not Resolved]
  - Palpitations [Recovered/Resolved]
  - Breast pain [Recovered/Resolved]
  - Disorientation [Recovering/Resolving]
  - Oropharyngeal pain [Recovering/Resolving]
  - Rhinorrhoea [Recovering/Resolving]
  - Tooth infection [Recovered/Resolved]
  - Pyrexia [Recovered/Resolved]
  - Asthenia [Recovered/Resolved]
  - Fatigue [Recovered/Resolved]
  - Movement disorder [Not Recovered/Not Resolved]
  - COVID-19 [Unknown]
  - Optic neuritis [Recovered/Resolved]

NARRATIVE: CASE EVENT DATE: 20180629
